FAERS Safety Report 6048455-3 (Version None)
Quarter: 2009Q1

REPORT INFORMATION
  Report Type: 
  Country: None (occurrence: None)
  Receive Date: 20090123
  Receipt Date: 20090116
  Transmission Date: 20090719
  Serious: Yes (Other)
  Sender: FDA-Public Use
  Company Number: A0764673A

PATIENT
  Sex: Female
  Weight: 147.7 kg

DRUGS (2)
  1. ROSIGLITAZONE MALEATE [Suspect]
     Route: 048
  2. LIPITOR [Concomitant]

REACTIONS (2)
  - ARRHYTHMIA [None]
  - HEART INJURY [None]
